FAERS Safety Report 7683816-8 (Version None)
Quarter: 2011Q3

REPORT INFORMATION
  Report Type: 
  Country: None (occurrence: None)
  Receive Date: 20110815
  Receipt Date: 20110804
  Transmission Date: 20111222
  Serious: Yes (Hospitalization, Other)
  Sender: FDA-Public Use
  Company Number: US-B.I. PHARMACEUTICALS,INC./RIDGEFIELD-2011-DE-04454GD

PATIENT
  Age: 80 Year
  Sex: Female

DRUGS (5)
  1. HYDROCHLOROTHIAZIDE [Suspect]
     Indication: HYPERTENSION
  2. LISINOPRIL [Concomitant]
  3. BISACODYL [Suspect]
     Indication: BOWEL PREPARATION
  4. POLYETHYLENE GLYCOL [Suspect]
     Indication: BOWEL PREPARATION
     Route: 048
  5. PROPYLTHIOURACIL [Concomitant]

REACTIONS (10)
  - NAUSEA [None]
  - ASTHENIA [None]
  - BRAIN OEDEMA [None]
  - VOMITING [None]
  - DIARRHOEA [None]
  - POSTURE ABNORMAL [None]
  - HYPONATRAEMIA [None]
  - UNRESPONSIVE TO STIMULI [None]
  - MIOSIS [None]
  - GAIT DISTURBANCE [None]
